FAERS Safety Report 8047205-9 (Version None)
Quarter: 2012Q1

REPORT INFORMATION
  Report Type: 
  Country: None (occurrence: None)
  Receive Date: 20120116
  Receipt Date: 20120110
  Transmission Date: 20120608
  Serious: Yes (Other)
  Sender: FDA-Public Use
  Company Number: PL-SHIRE-SPV1-2012-00031

PATIENT
  Sex: Male

DRUGS (2)
  1. GENISTEIN [Concomitant]
     Indication: CARDIOVASCULAR DISORDER
     Dosage: UNK, UNKNOWN
     Route: 065
     Dates: start: 20080312
  2. ELAPRASE [Suspect]
     Indication: MUCOPOLYSACCHARIDOSIS II
     Dosage: 0.5 MG/KG, 1X/WEEK
     Route: 041
     Dates: start: 20090911

REACTIONS (2)
  - JOINT STIFFNESS [None]
  - CONDITION AGGRAVATED [None]
